FAERS Safety Report 17771969 (Version 1)
Quarter: 2020Q2

REPORT INFORMATION
  Report Type: Report from Study
  Country: US (occurrence: US)
  Receive Date: 20200512
  Receipt Date: 20200512
  Transmission Date: 20200714
  Serious: Yes (Death, Hospitalization, Other)
  Sender: FDA-Public Use
  Company Number: US-ACTELION-A-US2019-187131

PATIENT
  Age: 62 Year
  Sex: Female

DRUGS (15)
  1. OPSUMIT [Suspect]
     Active Substance: MACITENTAN
     Indication: PULMONARY ARTERIAL HYPERTENSION
     Dosage: 10 MG, QD
     Route: 048
     Dates: start: 201705, end: 202004
  2. METHOTREXATE. [Concomitant]
     Active Substance: METHOTREXATE
  3. TYLENOL [Concomitant]
     Active Substance: ACETAMINOPHEN
  4. SILDENAFIL. [Concomitant]
     Active Substance: SILDENAFIL
  5. MOTRIN [Concomitant]
     Active Substance: IBUPROFEN
  6. CARBAMIDE PEROXIDE [Concomitant]
     Active Substance: CARBAMIDE PEROXIDE
  7. FOLIC ACID. [Concomitant]
     Active Substance: FOLIC ACID
  8. OXYGEN. [Concomitant]
     Active Substance: OXYGEN
     Dosage: 6-10 L
  9. FUROSEMIDE. [Concomitant]
     Active Substance: FUROSEMIDE
  10. LIPITOR [Concomitant]
     Active Substance: ATORVASTATIN CALCIUM
  11. ALBUTEROL HFA [Concomitant]
     Active Substance: ALBUTEROL SULFATE
  12. OXYGEN. [Concomitant]
     Active Substance: OXYGEN
     Dosage: 4 L
  13. ATORVASTATIN [Concomitant]
     Active Substance: ATORVASTATIN
  14. OXYGEN. [Concomitant]
     Active Substance: OXYGEN
     Dosage: 8 UNK
     Route: 045
  15. GUAIFENESIN. [Concomitant]
     Active Substance: GUAIFENESIN

REACTIONS (14)
  - Respiratory failure [Unknown]
  - Fluid overload [Fatal]
  - Influenza [Unknown]
  - Acute respiratory failure [Unknown]
  - Oxygen saturation decreased [Unknown]
  - Polyuria [Unknown]
  - Dyspnoea exertional [Recovering/Resolving]
  - Pulmonary arterial pressure increased [Recovering/Resolving]
  - Pyrexia [Unknown]
  - Dyspnoea [Recovering/Resolving]
  - Syncope [Fatal]
  - Concomitant disease aggravated [Unknown]
  - Productive cough [Unknown]
  - Right ventricular failure [Fatal]

NARRATIVE: CASE EVENT DATE: 20200330
